FAERS Safety Report 8839528 (Version 1)
Quarter: 2012Q4

REPORT INFORMATION
  Report Type: 
  Country: US (occurrence: US)
  Receive Date: 20121015
  Receipt Date: 20121015
  Transmission Date: 20130627
  Serious: Yes (Death, Other)
  Sender: FDA-Public Use
  Company Number: PHEH2012US020033

PATIENT
  Age: 62 Year
  Sex: Male

DRUGS (2)
  1. CLOZARIL [Suspect]
     Dates: start: 201207
  2. LATUDA [Suspect]
     Dosage: 40 mg, UNK
     Route: 048

REACTIONS (4)
  - Fall [Fatal]
  - Head injury [Fatal]
  - Agranulocytosis [Unknown]
  - Psychotic disorder [Unknown]
